FAERS Safety Report 19596748 (Version 2)
Quarter: 2021Q3

REPORT INFORMATION
  Report Type: Report from Study
  Country: MX (occurrence: MX)
  Receive Date: 20210722
  Receipt Date: 20210809
  Transmission Date: 20211014
  Serious: Yes (Other)
  Sender: FDA-Public Use
  Company Number: MX-EMD SERONO-9252742

PATIENT
  Age: 49 Year
  Sex: Female

DRUGS (4)
  1. MAVENCLAD [Suspect]
     Active Substance: CLADRIBINE
     Dosage: FIRST YEAR SECOND WEEK THERAPY: TWO TABLETS ON DAY ONE AND ONE TABLET ON DAYS TWO TO FIVE.
     Route: 048
     Dates: start: 20200724, end: 20200728
  2. BICONCOR [Concomitant]
     Active Substance: BISOPROLOL FUMARATE\HYDROCHLOROTHIAZIDE
     Indication: TACHYCARDIA
  3. MAVENCLAD [Suspect]
     Active Substance: CLADRIBINE
     Indication: RELAPSING-REMITTING MULTIPLE SCLEROSIS
     Dosage: FIRST YEAR FIRST WEEK THERAPY: TWO TABLETS ON DAY ONE AND ONE TABLET ON DAYS TWO TO FIVE.
     Route: 048
     Dates: start: 20200622, end: 20200626
  4. MAVENCLAD [Suspect]
     Active Substance: CLADRIBINE
     Dosage: YEAR TWO THERAPY: TWO TABLETS ON DAY ONE AND ONE TABLET ON DAYS TWO TO FIVE
     Route: 048
     Dates: start: 2021

REACTIONS (5)
  - Fatigue [Not Recovered/Not Resolved]
  - Asthenia [Unknown]
  - Retinal artery occlusion [Recovering/Resolving]
  - Nausea [Not Recovered/Not Resolved]
  - Tachycardia [Not Recovered/Not Resolved]

NARRATIVE: CASE EVENT DATE: 202009
